FAERS Safety Report 20167471 (Version 2)
Quarter: 2021Q4

REPORT INFORMATION
  Report Type: Spontaneous
  Country: US (occurrence: US)
  Receive Date: 20211209
  Receipt Date: 20211224
  Transmission Date: 20220304
  Serious: Yes (Other)
  Sender: FDA-Public Use
  Company Number: US-TEVA-2021-US-1984953

PATIENT
  Age: 12 Year
  Sex: Female

DRUGS (13)
  1. COLCHICINE [Suspect]
     Active Substance: COLCHICINE
     Indication: Steroid dependence
     Route: 065
  2. HYDROXYCHLOROQUINE [Suspect]
     Active Substance: HYDROXYCHLOROQUINE
     Indication: Steroid dependence
     Route: 065
  3. METHOTREXATE [Suspect]
     Active Substance: METHOTREXATE
     Indication: Steroid dependence
     Route: 065
  4. METHYLPREDNISOLONE [Suspect]
     Active Substance: METHYLPREDNISOLONE
     Indication: CANDLE syndrome
     Dosage: EVERY 2-4 WEEKS
     Route: 050
  5. PREDNISONE [Suspect]
     Active Substance: PREDNISONE
     Indication: CANDLE syndrome
     Dosage: DAILY
     Route: 065
  6. TOFACITINIB [Suspect]
     Active Substance: TOFACITINIB
     Indication: CANDLE syndrome
     Dosage: 10 MILLIGRAM DAILY;
     Route: 048
  7. TOFACITINIB [Suspect]
     Active Substance: TOFACITINIB
     Indication: CANDLE syndrome
     Route: 048
  8. DAPSONE [Suspect]
     Active Substance: DAPSONE
     Indication: Steroid dependence
     Route: 065
  9. HUMAN IMMUNOGLOBULIN G [Suspect]
     Active Substance: HUMAN IMMUNOGLOBULIN G
     Indication: Steroid dependence
     Route: 042
  10. TOCILIZUMAB [Suspect]
     Active Substance: TOCILIZUMAB
     Indication: Steroid dependence
     Route: 065
  11. ETANERCEPT [Suspect]
     Active Substance: ETANERCEPT
     Indication: Steroid dependence
     Route: 065
  12. ADALIMUMAB [Suspect]
     Active Substance: ADALIMUMAB
     Indication: Steroid dependence
     Route: 065
  13. INFLIXIMAB [Suspect]
     Active Substance: INFLIXIMAB
     Indication: Steroid dependence
     Route: 065

REACTIONS (3)
  - Steroid dependence [Recovering/Resolving]
  - Treatment failure [Unknown]
  - Off label use [Unknown]
